FAERS Safety Report 15622404 (Version 1)
Quarter: 2018Q4

REPORT INFORMATION
  Report Type: Spontaneous
  Country: US (occurrence: US)
  Receive Date: 20181115
  Receipt Date: 20181115
  Transmission Date: 20190205
  Serious: No
  Sender: FDA-Public Use
  Company Number: US-PFIZER INC-2018456570

PATIENT
  Age: 35 Year
  Sex: Female

DRUGS (1)
  1. EFFEXOR XR [Suspect]
     Active Substance: VENLAFAXINE HYDROCHLORIDE
     Dosage: 37.5 MG, UNK

REACTIONS (5)
  - Paraesthesia [Unknown]
  - Withdrawal syndrome [Unknown]
  - Malaise [Unknown]
  - Hallucination, auditory [Unknown]
  - Libido decreased [Unknown]
